FAERS Safety Report 8015882 (Version 2)
Quarter: 2013Q1

REPORT INFORMATION
  Report Type: Spontaneous
  Country: DE (occurrence: DE)
  Receive Date: 20110629
  Receipt Date: 20130314
  Transmission Date: 20140127
  Serious: Yes (Other)
  Sender: FDA-Public Use
  Company Number: PHHY2010DE92251

PATIENT
  Age: 76 Year
  Sex: Female

DRUGS (4)
  1. ZOLEDRONATE [Suspect]
     Route: 042
  2. PAMIDRONATE [Suspect]
     Route: 042
  3. IBANDRONATE SODIUM [Suspect]
     Route: 042
  4. CHEMOTHERAPEUTICS NOS [Concomitant]

REACTIONS (2)
  - Osteonecrosis of jaw [Unknown]
  - Decubitus ulcer [Unknown]
